FAERS Safety Report 16188418 (Version 5)
Quarter: 2019Q2

REPORT INFORMATION
  Report Type: Report from Study
  Country: US (occurrence: US)
  Receive Date: 20190412
  Receipt Date: 20190621
  Transmission Date: 20190711
  Serious: Yes (Other)
  Sender: FDA-Public Use
  Company Number: US-SA-2018SA260920

PATIENT
  Age: 51 Year
  Sex: Male

DRUGS (8)
  1. ALEMTUZUMAB [Suspect]
     Active Substance: ALEMTUZUMAB
     Dosage: 12 MG, QD
     Route: 041
     Dates: start: 20170619, end: 20170623
  2. ACYCLOVIR [ACICLOVIR] [Concomitant]
     Active Substance: ACYCLOVIR
     Dosage: UNK, UNK
     Route: 065
  3. TAMSULOSIN [Concomitant]
     Active Substance: TAMSULOSIN
  4. CASTOR OIL. [Concomitant]
     Active Substance: CASTOR OIL
  5. ALEMTUZUMAB [Suspect]
     Active Substance: ALEMTUZUMAB
     Indication: MULTIPLE SCLEROSIS
     Dosage: 12 MG, QD
     Route: 041
     Dates: start: 20180911, end: 20180913
  6. AMITIZA [Concomitant]
     Active Substance: LUBIPROSTONE
  7. SENOKOT [Concomitant]
     Active Substance: SENNOSIDES
  8. AMPYRA [Suspect]
     Active Substance: DALFAMPRIDINE
     Dosage: UNK
     Dates: start: 2013

REACTIONS (17)
  - Dysuria [Unknown]
  - Fluid retention [Recovered/Resolved]
  - Urinary retention [Unknown]
  - Inappropriate schedule of product administration [Unknown]
  - Crying [Not Recovered/Not Resolved]
  - Blood pressure abnormal [Recovered/Resolved]
  - Cough [Recovered/Resolved]
  - Decubitus ulcer [Not Recovered/Not Resolved]
  - Nasal discomfort [Not Recovered/Not Resolved]
  - Blood pressure increased [Unknown]
  - Urinary tract disorder [Not Recovered/Not Resolved]
  - Affective disorder [Not Recovered/Not Resolved]
  - Skin abrasion [Not Recovered/Not Resolved]
  - Throat irritation [Not Recovered/Not Resolved]
  - Fall [Not Recovered/Not Resolved]
  - Peripheral swelling [Recovered/Resolved]
  - Eating disorder [Not Recovered/Not Resolved]

NARRATIVE: CASE EVENT DATE: 2018
